FAERS Safety Report 17628980 (Version 5)
Quarter: 2021Q3

REPORT INFORMATION
  Report Type: Report from Study
  Country: US (occurrence: US)
  Receive Date: 20200406
  Receipt Date: 20210720
  Transmission Date: 20211014
  Serious: No
  Sender: FDA-Public Use
  Company Number: US-SHIRE-US202012547

PATIENT
  Age: 28 Year
  Sex: Male

DRUGS (2)
  1. LANADELUMAB [Suspect]
     Active Substance: LANADELUMAB
     Indication: HEREDITARY ANGIOEDEMA
     Dosage: 300 MILLILITER, 1/WEEK
     Route: 065
     Dates: start: 20190510
  2. LANADELUMAB [Suspect]
     Active Substance: LANADELUMAB
     Indication: PROPHYLAXIS
     Dosage: 300 MILLIGRAM, Q2WEEKS
     Route: 058

REACTIONS (7)
  - Product dose omission issue [Unknown]
  - Product storage error [Unknown]
  - Poor quality product administered [Unknown]
  - Fear of injection [Unknown]
  - Hereditary angioedema [Unknown]
  - Therapy interrupted [Unknown]
  - Influenza [Unknown]

NARRATIVE: CASE EVENT DATE: 20200406
